FAERS Safety Report 7574605-3 (Version None)
Quarter: 2011Q2

REPORT INFORMATION
  Report Type: 
  Country: None (occurrence: None)
  Receive Date: 20110627
  Receipt Date: 20110113
  Transmission Date: 20111010
  Serious: Yes (Hospitalization, Other)
  Sender: FDA-Public Use
  Company Number: US-BAYER-201039801NA

PATIENT
  Age: 25 Year
  Sex: Female
  Weight: 106.98 kg

DRUGS (4)
  1. YAZ [Suspect]
     Indication: CONTRACEPTION
     Dosage: UNK
     Route: 048
     Dates: start: 20070201, end: 20071101
  2. HEPARIN [Concomitant]
     Indication: PULMONARY EMBOLISM
     Dosage: UNK
     Dates: start: 20071101, end: 20071101
  3. YAZ [Suspect]
     Indication: MENSTRUAL CYCLE MANAGEMENT
  4. COUMADIN [Concomitant]
     Indication: PULMONARY EMBOLISM
     Dosage: UNK
     Dates: start: 20071101

REACTIONS (7)
  - DYSPNOEA [None]
  - CHEST PAIN [None]
  - PALPITATIONS [None]
  - CHOLECYSTECTOMY [None]
  - RIGHT VENTRICULAR FAILURE [None]
  - CHOLELITHIASIS [None]
  - PULMONARY EMBOLISM [None]
